FAERS Safety Report 12877561 (Version 1)
Quarter: 2016Q4

REPORT INFORMATION
  Report Type: Report from Study
  Country: US (occurrence: US)
  Receive Date: 20161024
  Receipt Date: 20161024
  Transmission Date: 20170207
  Serious: No
  Sender: FDA-Public Use
  Company Number: US-AMGEN-USASL2016139454

PATIENT
  Age: 47 Year
  Sex: Female

DRUGS (1)
  1. ENBREL [Suspect]
     Active Substance: ETANERCEPT
     Indication: ACTINIC KERATOSIS
     Dosage: 50 MG, QWK
     Route: 065

REACTIONS (3)
  - Injection site urticaria [Unknown]
  - Off label use [Unknown]
  - Injection site erythema [Unknown]
